FAERS Safety Report 5221737-0 (Version None)
Quarter: 2007Q1

REPORT INFORMATION
  Report Type: 
  Country: None (occurrence: None)
  Receive Date: 20070129
  Receipt Date: 20070118
  Transmission Date: 20070707
  Serious: Yes (Hospitalization)
  Sender: FDA-Public Use
  Company Number: US-KINGPHARMUSA00001-K200700044

PATIENT
  Age: 61 Year
  Sex: Male

DRUGS (4)
  1. ALTACE [Suspect]
     Dosage: 10 MG, QD
     Route: 048
     Dates: start: 20061008, end: 20061113
  2. TAHOR [Suspect]
     Dosage: 80 MG, QD
     Route: 048
     Dates: start: 20061008, end: 20061113
  3. CARDENSIEL [Suspect]
     Dosage: 2.5 MG, QD
     Route: 048
     Dates: start: 20061008, end: 20061113
  4. PLAVIX [Suspect]
     Dosage: 75 MG, QD
     Route: 048
     Dates: start: 20061008, end: 20061113

REACTIONS (6)
  - ATRIAL FIBRILLATION [None]
  - RETINAL DETACHMENT [None]
  - RETINAL OEDEMA [None]
  - RETINOPATHY [None]
  - VISUAL ACUITY REDUCED [None]
  - VITRITIS [None]
